FAERS Safety Report 16095093 (Version 2)
Quarter: 2019Q1

REPORT INFORMATION
  Report Type: Spontaneous
  Country: DE (occurrence: DE)
  Receive Date: 20190320
  Receipt Date: 20190328
  Transmission Date: 20190418
  Serious: Yes (Hospitalization, Other)
  Sender: FDA-Public Use
  Company Number: DE-SUN PHARMACEUTICAL INDUSTRIES LTD-2019RR-201657

PATIENT
  Age: 70 Year
  Sex: Male
  Weight: 81 kg

DRUGS (3)
  1. DEXA 8MG [Concomitant]
     Indication: PREMEDICATION
     Dosage: GABE 30 MINUTEN VOR THERAPIE ()
     Route: 042
     Dates: start: 20190107
  2. GRANISETRON 1MG [Concomitant]
     Indication: PREMEDICATION
     Dosage: GABE 30 MINUTEN VOR THERAPIE ()
     Route: 042
     Dates: start: 20190107
  3. OXALIPLATIN SUN 5 MG/ML KONZENTRAT ZUR HERSTELLUNG [Suspect]
     Active Substance: OXALIPLATIN
     Indication: PRODUCT USED FOR UNKNOWN INDICATION
     Dosage: INFUSION }2 H I.V.
     Route: 042
     Dates: start: 20190107

REACTIONS (7)
  - Blood pressure increased [Recovering/Resolving]
  - Flushing [Recovering/Resolving]
  - Dyspnoea [Recovering/Resolving]
  - Choking [Recovering/Resolving]
  - Tongue spasm [Recovering/Resolving]
  - Bronchospasm [Recovering/Resolving]
  - Anxiety [Recovering/Resolving]

NARRATIVE: CASE EVENT DATE: 20190128
